FAERS Safety Report 6994283-1 (Version None)
Quarter: 2010Q3

REPORT INFORMATION
  Report Type: 
  Country: None (occurrence: None)
  Receive Date: 20100917
  Receipt Date: 20100910
  Transmission Date: 20110219
  Serious: Yes (Other)
  Sender: FDA-Public Use
  Company Number: US-ELI_LILLY_AND_COMPANY-US201009003002

PATIENT
  Age: 64 Year
  Sex: Female

DRUGS (4)
  1. HUMALOG [Suspect]
     Indication: DIABETES MELLITUS
     Dosage: UNK, UNK
  2. HUMULIN 70/30 [Suspect]
  3. LANTUS [Concomitant]
  4. ACTOS [Concomitant]

REACTIONS (4)
  - INCREASED TENDENCY TO BRUISE [None]
  - LYMPHOEDEMA [None]
  - MOBILITY DECREASED [None]
  - SKIN ATROPHY [None]
